FAERS Safety Report 4655140-9 (Version None)
Quarter: 2005Q2

REPORT INFORMATION
  Report Type: 
  Country: None (occurrence: None)
  Receive Date: 20050505
  Receipt Date: 20050426
  Transmission Date: 20051028
  Serious: Yes (Life-Threatening, Hospitalization)
  Sender: FDA-Public Use
  Company Number: 6013259

PATIENT
  Age: 55 Year
  Sex: Male

DRUGS (2)
  1. BISOPROLOL FUMARATE [Suspect]
     Indication: ATRIAL FIBRILLATION
     Dosage: 5,000 (5 MG, 1 IN 1 D)
     Route: 048
     Dates: start: 20040813, end: 20040813
  2. ASPIRIN [Concomitant]

REACTIONS (10)
  - ANGINA PECTORIS [None]
  - ARTERIOSPASM CORONARY [None]
  - ATRIAL FIBRILLATION [None]
  - ATRIOVENTRICULAR BLOCK COMPLETE [None]
  - BRADYCARDIA [None]
  - CONVULSION [None]
  - ELECTROCARDIOGRAM ST SEGMENT ELEVATION [None]
  - LOSS OF CONSCIOUSNESS [None]
  - SYNCOPE [None]
  - VENTRICULAR FIBRILLATION [None]
